FAERS Safety Report 25706635 (Version 1)
Quarter: 2025Q3

REPORT INFORMATION
  Report Type: Spontaneous
  Country: US (occurrence: US)
  Receive Date: 20250820
  Receipt Date: 20250820
  Transmission Date: 20251021
  Serious: No
  Sender: TARO
  Company Number: US-TARO PHARMACEUTICALS USA INC.-2024TAR00124

PATIENT

DRUGS (3)
  1. FLUOCINONIDE [Suspect]
     Active Substance: FLUOCINONIDE
     Indication: Product used for unknown indication
     Route: 065
  2. XTANDI [Suspect]
     Active Substance: ENZALUTAMIDE
     Indication: Prostate cancer
     Dosage: 80 MG, OD,
     Route: 048
     Dates: start: 20230829
  3. XTANDI [Suspect]
     Active Substance: ENZALUTAMIDE
     Dosage: 40 MG, OD
     Route: 048
     Dates: start: 20231229

REACTIONS (4)
  - Poor peripheral circulation [Unknown]
  - Erythema [Unknown]
  - Condition aggravated [Unknown]
  - Peripheral swelling [Unknown]
